FAERS Safety Report 8252078-5 (Version None)
Quarter: 2012Q2

REPORT INFORMATION
  Report Type: 
  Country: None (occurrence: None)
  Receive Date: 20120402
  Receipt Date: 20110614
  Transmission Date: 20120825
  Serious: No
  Sender: FDA-Public Use
  Company Number: US-ABBOTT-11P-163-0732321-00

PATIENT
  Age: 75 Year
  Sex: Male

DRUGS (2)
  1. ANDROGEL [Suspect]
     Indication: BLOOD TESTOSTERONE DECREASED
     Dosage: 2 PUMP PRESSES; 1 IN 1 DAY
     Route: 062
     Dates: start: 20110524, end: 20110608
  2. PROSTATE SUPPORT [Suspect]
     Indication: SUPPLEMENTATION THERAPY
     Route: 048
     Dates: end: 20110608

REACTIONS (1)
  - URINE FLOW DECREASED [None]
